FAERS Safety Report 6580258-3 (Version None)
Quarter: 2010Q1

REPORT INFORMATION
  Report Type: 
  Country: None (occurrence: None)
  Receive Date: 20100212
  Receipt Date: 20100204
  Transmission Date: 20100710
  Serious: No
  Sender: FDA-Public Use
  Company Number: US-BAYER-201013365NA

PATIENT
  Age: 14 Year
  Sex: Male

DRUGS (1)
  1. MAGNEVIST [Suspect]
     Indication: NUCLEAR MAGNETIC RESONANCE IMAGING
     Dosage: RIGHT HAND
     Route: 042
     Dates: start: 20100204, end: 20100204

REACTIONS (2)
  - EYE IRRITATION [None]
  - PRURITUS GENERALISED [None]
